FAERS Safety Report 24404150 (Version 1)
Quarter: 2024Q4

REPORT INFORMATION
  Report Type: Spontaneous
  Country: PT (occurrence: PT)
  Receive Date: 20241007
  Receipt Date: 20241007
  Transmission Date: 20250115
  Serious: Yes (Other)
  Sender: ALEXION PHARMACEUTICALS
  Company Number: None

PATIENT
  Age: 61 Year

DRUGS (5)
  1. TAGRISSO [Suspect]
     Active Substance: OSIMERTINIB
     Indication: Lung neoplasm malignant
     Dosage: 80 MILLIGRAM
  2. ALBUTEROL [Concomitant]
     Active Substance: ALBUTEROL
  3. TENOFOVIR [Concomitant]
     Active Substance: TENOFOVIR
  4. RIVAROXABAN [Concomitant]
     Active Substance: RIVAROXABAN
  5. DEXAMETHASONE [Concomitant]
     Active Substance: DEXAMETHASONE

REACTIONS (2)
  - Vasculitis [Recovering/Resolving]
  - Oedema peripheral [Recovering/Resolving]
